FAERS Safety Report 21061910 (Version 1)
Quarter: 2022Q3

REPORT INFORMATION
  Report Type: Spontaneous
  Country: US (occurrence: US)
  Receive Date: 20220710
  Receipt Date: 20220710
  Transmission Date: 20221027
  Serious: No
  Sender: FDA-Public Use
  Company Number: US-JNJFOC-20220708796

PATIENT
  Sex: Female

DRUGS (1)
  1. IMODIUM A-D [Suspect]
     Active Substance: LOPERAMIDE HYDROCHLORIDE
     Indication: Diarrhoea
     Dosage: STARTED USING THE PRODUCT LAST SPRING; QUARTER OF THE NORMAL DOSAGE
     Route: 048

REACTIONS (1)
  - Dizziness [Recovered/Resolved]
